FAERS Safety Report 13596528 (Version 1)
Quarter: 2017Q2

REPORT INFORMATION
  Report Type: Spontaneous
  Country: US (occurrence: US)
  Receive Date: 20170522
  Receipt Date: 20170522
  Transmission Date: 20170830
  Serious: No
  Sender: FDA-Public Use
  Company Number: None

PATIENT
  Age: 1 Year
  Sex: Female
  Weight: 12.6 kg

DRUGS (1)
  1. BABYGANICS SUNSCREEN 50 SPF [Suspect]
     Active Substance: OCTINOXATE\OCTISALATE\ZINC OXIDE
     Indication: PROPHYLAXIS AGAINST SOLAR RADIATION
     Dates: start: 20170516, end: 20170521

REACTIONS (2)
  - Sunburn [None]
  - Application site reaction [None]

NARRATIVE: CASE EVENT DATE: 20170521
